FAERS Safety Report 6693962-3 (Version None)
Quarter: 2010Q2

REPORT INFORMATION
  Report Type: 
  Country: None (occurrence: None)
  Receive Date: 20100423
  Receipt Date: 20100413
  Transmission Date: 20101027
  Serious: Yes (Hospitalization)
  Sender: FDA-Public Use
  Company Number: ES-PFIZER INC-2010046786

PATIENT
  Age: 70 Year
  Sex: Male

DRUGS (2)
  1. ALDACTONE [Suspect]
     Indication: CARDIAC FAILURE CONGESTIVE
     Dosage: 25 MG, 1X/DAY
     Route: 048
     Dates: start: 20090201, end: 20090303
  2. SEGURIL [Suspect]
     Indication: CARDIAC FAILURE CONGESTIVE
     Dosage: 80 MG, DAILY
     Route: 048
     Dates: start: 20090201, end: 20090303

REACTIONS (2)
  - HEPATIC ENCEPHALOPATHY [None]
  - RENAL FAILURE [None]
